FAERS Safety Report 7408574-3 (Version None)
Quarter: 2011Q1

REPORT INFORMATION
  Report Type: 
  Country: None (occurrence: None)
  Receive Date: 20110301
  Receipt Date: 20100913
  Transmission Date: 20110831
  Serious: Yes (Hospitalization)
  Sender: FDA-Public Use
  Company Number: US-JNJFOC-20100904612

PATIENT
  Age: 64 Year
  Sex: Female
  Weight: 102.8 kg

DRUGS (13)
  1. CAROTENE (BETACAROTENE) [Concomitant]
  2. CADUET (CADUET) [Concomitant]
  3. ZOLPIDEM TARTRATE [Concomitant]
  4. MOTRIN IB [Suspect]
     Indication: ILL-DEFINED DISORDER
     Dosage: ORAL
     Route: 048
  5. SERTRALINE HYDROCHLORIDE [Concomitant]
  6. HYDROXYZINE HCL [Concomitant]
  7. NEPHRO-VITE (NEPHRO-VITE /02375601/) [Concomitant]
  8. GARLIC (ALLIUM SATIVUM) [Concomitant]
  9. CALCIUM ACETATE (CALCIUM ACETATE) [Concomitant]
  10. SHORT ACTING INSULIN (INSULINS AND ANALOGUES, FAST-ACTING) [Concomitant]
  11. INSULIN (INSULIN) [Concomitant]
  12. VICODIN [Concomitant]
  13. OMEPRAZOLE [Concomitant]

REACTIONS (1)
  - DUODENAL ULCER HAEMORRHAGE [None]
